FAERS Safety Report 18543289 (Version 1)
Quarter: 2020Q4

REPORT INFORMATION
  Report Type: Other
  Country: US (occurrence: US)
  Receive Date: 20201125
  Receipt Date: 20201125
  Transmission Date: 20210114
  Serious: Yes (Other)
  Sender: FDA-Public Use
  Company Number: US-INTERCEPT-PM2020001882

PATIENT
  Age: 49 Year
  Sex: Female

DRUGS (1)
  1. OCALIVA [Suspect]
     Active Substance: OBETICHOLIC ACID
     Indication: PRIMARY BILIARY CHOLANGITIS
     Dosage: 5 MG, QD
     Route: 048
     Dates: start: 202007

REACTIONS (9)
  - Neck pain [Not Recovered/Not Resolved]
  - Pruritus [Recovering/Resolving]
  - Intervertebral disc disorder [Recovered/Resolved]
  - Hypoaesthesia [Recovered/Resolved]
  - Nerve compression [Unknown]
  - Paraesthesia [Recovered/Resolved]
  - Hepatic enzyme abnormal [Unknown]
  - Intervertebral disc operation [Recovered/Resolved]
  - Pain in extremity [Not Recovered/Not Resolved]

NARRATIVE: CASE EVENT DATE: 2020
